FAERS Safety Report 15378467 (Version 1)
Quarter: 2018Q3

REPORT INFORMATION
  Report Type: Spontaneous
  Country: US (occurrence: US)
  Receive Date: 20180913
  Receipt Date: 20180913
  Transmission Date: 20181010
  Serious: Yes (Hospitalization, Other)
  Sender: FDA-Public Use
  Company Number: US-OTSUKA-2018_028458

PATIENT
  Sex: Male

DRUGS (3)
  1. ABILIFY [Suspect]
     Active Substance: ARIPIPRAZOLE
     Indication: MAJOR DEPRESSION
  2. ABILIFY [Suspect]
     Active Substance: ARIPIPRAZOLE
     Indication: ANXIETY
     Dosage: 30MG, QD
     Route: 065
     Dates: start: 201109, end: 201612
  3. ABILIFY [Suspect]
     Active Substance: ARIPIPRAZOLE
     Indication: POST-TRAUMATIC STRESS DISORDER

REACTIONS (18)
  - Suicidal ideation [Not Recovered/Not Resolved]
  - Eating disorder [Not Recovered/Not Resolved]
  - Loss of employment [Unknown]
  - Obsessive-compulsive disorder [Not Recovered/Not Resolved]
  - Emotional distress [Unknown]
  - Suicide attempt [Not Recovered/Not Resolved]
  - Neuropsychiatric symptoms [Unknown]
  - Mental disorder [Unknown]
  - Compulsive hoarding [Not Recovered/Not Resolved]
  - Compulsive sexual behaviour [Not Recovered/Not Resolved]
  - Divorced [Unknown]
  - Pregnancy of partner [Unknown]
  - Incorrect dose administered [Unknown]
  - Injury [Unknown]
  - Compulsive shopping [Not Recovered/Not Resolved]
  - Gambling disorder [Not Recovered/Not Resolved]
  - Economic problem [Unknown]
  - Product use in unapproved indication [Unknown]

NARRATIVE: CASE EVENT DATE: 201109
